FAERS Safety Report 15074880 (Version 1)
Quarter: 2018Q2

REPORT INFORMATION
  Report Type: Spontaneous
  Country: US (occurrence: US)
  Receive Date: 20180627
  Receipt Date: 20180627
  Transmission Date: 20180711
  Serious: No
  Sender: FDA-Public Use
  Company Number: US-SAOL THERAPEUTICS-2017SAO01423

PATIENT
  Sex: Female

DRUGS (1)
  1. BACLOFEN. [Suspect]
     Active Substance: BACLOFEN
     Indication: SPINAL PAIN
     Dosage: 41.97 ?G, \DAY
     Route: 037

REACTIONS (8)
  - Stress [Unknown]
  - Off label use [Unknown]
  - Fatigue [Unknown]
  - Crying [Unknown]
  - Medical device discomfort [Unknown]
  - Fall [Unknown]
  - Discomfort [Unknown]
  - Feeling hot [Unknown]

NARRATIVE: CASE EVENT DATE: 20170831
